FAERS Safety Report 5186488-X (Version None)
Quarter: 2006Q4

REPORT INFORMATION
  Report Type: 
  Country: None (occurrence: None)
  Receive Date: 20061213
  Receipt Date: 20061128
  Transmission Date: 20070319
  Serious: Yes (Hospitalization)
  Sender: FDA-Public Use
  Company Number: 14307

PATIENT
  Age: 71 Year
  Sex: Female

DRUGS (10)
  1. PACLITAXEL [Suspect]
     Indication: OVARIAN EPITHELIAL CANCER RECURRENT
  2. CARBOPLATIN [Suspect]
  3. OMEPRAZOLE [Concomitant]
  4. FUROSEMIDE [Concomitant]
  5. PREDNISONE [Concomitant]
  6. VENTOLIN [Concomitant]
  7. IPRATROPIUM BROMIDE [Concomitant]
  8. BUDESONIDE [Concomitant]
  9. FENTANYL [Concomitant]
  10. LORAZEPAM [Concomitant]

REACTIONS (2)
  - RESPIRATORY FAILURE [None]
  - RESPIRATORY TRACT INFECTION [None]
